FAERS Safety Report 10431323 (Version 2)
Quarter: 2014Q3

REPORT INFORMATION
  Report Type: Spontaneous
  Country: US (occurrence: None)
  Receive Date: 20140903
  Receipt Date: 20140924
  Transmission Date: 20150326
  Serious: Yes (Other)
  Sender: FDA-Public Use
  Company Number: 2014-US-010743

PATIENT
  Age: 44 Year
  Sex: Female
  Weight: 134.7 kg

DRUGS (27)
  1. KLOR-CON [Concomitant]
     Active Substance: POTASSIUM CHLORIDE
  2. VITAMIN D (COLECALCIFEROL) [Concomitant]
  3. PROVERA (MEDROXYPROGESTERONE ACETATE) [Concomitant]
  4. PRAMIPEXOLE (PRAMIPLEXONE) [Concomitant]
  5. INDERAL [Concomitant]
     Active Substance: PROPRANOLOL HYDROCHLORIDE
  6. ADDERALL (AMFETAMINE ASPARTATE, AMFETAMINE SULFATE, DEXAMFETAMINE SACCHARATE, DEXAMFETAMINE SULFAE) [Concomitant]
  7. XYREM [Suspect]
     Active Substance: SODIUM OXYBATE
     Indication: NARCOLEPSY
     Route: 048
     Dates: start: 201406
  8. GABAPENTIN (GABAPENTIN) [Concomitant]
     Active Substance: GABAPENTIN
  9. BUMETANIDE (BUMETANIDE) [Concomitant]
     Active Substance: BUMETANIDE
  10. FISH OIL  (FISH OIL) [Concomitant]
     Active Substance: FISH OIL
  11. KLONOPIN [Concomitant]
     Active Substance: CLONAZEPAM
  12. NORTRIPTYLINE HCL (NORTRIPTYLINE HYDROCHLORIDE) [Concomitant]
  13. PRAVASTATIN (PRAVASTATIN SODIUN) [Concomitant]
  14. METHOCARBAMOL (METHCARBAMOL) [Concomitant]
  15. IPRATROPIUM BROMIDE (IPRATROPIUM BROMIDE) [Concomitant]
  16. LAMITCAL (LAMOTRIGINE) [Concomitant]
  17. IBUPROFEN (IBUPROFEN) [Concomitant]
     Active Substance: IBUPROFEN
  18. METFORMIN HCL (METFORMIN HYDROCHLORIDE) [Concomitant]
  19. EPIPEN [Concomitant]
     Active Substance: EPINEPHRINE
  20. ALBUTEROL SULFATE (SALBUTAMOL SULFATE) [Concomitant]
     Active Substance: ALBUTEROL SULFATE
  21. CYMBALTA [Concomitant]
     Active Substance: DULOXETINE HYDROCHLORIDE
  22. SPIRIVA [Concomitant]
     Active Substance: TIOTROPIUM BROMIDE MONOHYDRATE
  23. PROAIR HFA (SALABUTAMOL SULFATE) [Concomitant]
  24. XYREM [Suspect]
     Active Substance: SODIUM OXYBATE
     Indication: CATAPLEXY
     Route: 048
     Dates: start: 201406
  25. LOPID [Concomitant]
     Active Substance: GEMFIBROZIL
  26. LIDOCAINE HCL (LIDOCAINE HYDROCHLORIDE) [Concomitant]
  27. SYMBICORT (BUDNESONIDE SULFATE) [Concomitant]

REACTIONS (2)
  - Depression [None]
  - Knee operation [None]
